FAERS Safety Report 7256348-9 (Version None)
Quarter: 2011Q1

REPORT INFORMATION
  Report Type: 
  Country: None (occurrence: None)
  Receive Date: 20110129
  Receipt Date: 20100510
  Transmission Date: 20110831
  Serious: No
  Sender: FDA-Public Use
  Company Number: US-ABBOTT-10P-163-0643786-00

PATIENT
  Sex: Female
  Weight: 52.21 kg

DRUGS (4)
  1. HUMIRA [Suspect]
     Indication: COLITIS ULCERATIVE
     Route: 058
     Dates: start: 20090610, end: 20100401
  2. HUMIRA [Suspect]
     Route: 058
     Dates: start: 20100401
  3. MESALAMINE [Concomitant]
     Indication: COLITIS ULCERATIVE
     Route: 054
     Dates: start: 20070101
  4. CORTOFOAM [Concomitant]
     Indication: COLITIS ULCERATIVE
     Route: 054
     Dates: start: 20070101, end: 20100421

REACTIONS (2)
  - COLITIS ULCERATIVE [None]
  - TOOTHACHE [None]
